FAERS Safety Report 5635842-8 (Version None)
Quarter: 2008Q1

REPORT INFORMATION
  Report Type: 
  Country: None (occurrence: None)
  Receive Date: 20080221
  Receipt Date: 20080207
  Transmission Date: 20080703
  Serious: Yes (Death)
  Sender: FDA-Public Use
  Company Number: 100#03#2008-00784

PATIENT
  Age: 48 Year
  Sex: Male

DRUGS (3)
  1. SERTRALINE [Suspect]
     Indication: DRUG USE FOR UNKNOWN INDICATION
     Dosage: ORAL
     Route: 048
  2. CODEINE SUL TAB [Suspect]
     Indication: DRUG USE FOR UNKNOWN INDICATION
     Dosage: ORAL
     Route: 048
  3. LORAZEPAM [Suspect]
     Indication: DRUG USE FOR UNKNOWN INDICATION
     Dosage: ORAL
     Route: 048

REACTIONS (5)
  - DRUG TOXICITY [None]
  - INCORRECT DOSE ADMINISTERED [None]
  - PULMONARY OEDEMA [None]
  - RESPIRATORY DEPRESSION [None]
  - SEROTONIN SYNDROME [None]
